FAERS Safety Report 17202816 (Version 1)
Quarter: 2019Q4

REPORT INFORMATION
  Report Type: Spontaneous
  Country: FR (occurrence: FR)
  Receive Date: 20191226
  Receipt Date: 20191226
  Transmission Date: 20200122
  Serious: Yes (Hospitalization)
  Sender: FDA-Public Use
  Company Number: FR-PFIZER INC-2019549357

PATIENT
  Age: 65 Year
  Sex: Female
  Weight: 53 kg

DRUGS (14)
  1. TAHOR [Suspect]
     Active Substance: ATORVASTATIN CALCIUM
     Indication: HYPERCHOLESTEROLAEMIA
     Dosage: 10 MG, 1X/DAY
     Route: 048
  2. IMOVANE [Suspect]
     Active Substance: ZOPICLONE
     Indication: INSOMNIA
     Dosage: 3.75 MG, 1X/DAY
     Route: 048
     Dates: start: 20191031
  3. NEORAL [Suspect]
     Active Substance: CYCLOSPORINE
     Indication: PROPHYLAXIS AGAINST TRANSPLANT REJECTION
     Dosage: 80 MG, 1X/DAY
     Route: 048
  4. DOLIPRANE [Suspect]
     Active Substance: ACETAMINOPHEN
     Indication: PROCEDURAL PAIN
     Dosage: 4 G, 1X/DAY
     Route: 048
     Dates: start: 20191030, end: 20191106
  5. TRAMADOL MYLAN [Suspect]
     Active Substance: TRAMADOL
     Indication: PROCEDURAL PAIN
     Dosage: 100 MG, 1X/DAY
     Route: 048
     Dates: start: 20191102, end: 20191105
  6. BACTRIM [Suspect]
     Active Substance: SULFAMETHOXAZOLE\TRIMETHOPRIM
     Indication: TRANSPLANT
     Dosage: 1 DF, ALTERNATE DAY
     Route: 048
  7. FUROSEMIDE TEVA [Suspect]
     Active Substance: FUROSEMIDE
     Indication: CHRONIC KIDNEY DISEASE
     Dosage: 125 MG, 1X/DAY
     Route: 048
     Dates: start: 20191101, end: 20191105
  8. INEXIUM [ESOMEPRAZOLE MAGNESIUM] [Suspect]
     Active Substance: ESOMEPRAZOLE MAGNESIUM
     Indication: PROPHYLAXIS AGAINST GASTROINTESTINAL ULCER
     Dosage: 40 MG, 1X/DAY
     Route: 048
  9. DETENSIEL [BISOPROLOL] [Suspect]
     Active Substance: BISOPROLOL
     Indication: HYPERTENSION
     Dosage: 10 MG, 1X/DAY
     Route: 048
     Dates: start: 20191031, end: 20191105
  10. MOVICOL [Suspect]
     Active Substance: POLYETHYLENE GLYCOL 3350\POTASSIUM CHLORIDE\SODIUM BICARBONATE\SODIUM CHLORIDE
     Indication: CONSTIPATION
     Dosage: 2 DF, 1X/DAY (2 SACHETS)
     Route: 048
     Dates: start: 20191103, end: 20191104
  11. KARDEGIC [Suspect]
     Active Substance: ASPIRIN DL-LYSINE
     Indication: PROSTHESIS IMPLANTATION
     Dosage: 75 MG, 1X/DAY
     Route: 048
     Dates: start: 20191030
  12. NEFOPAM MEDISOL [Suspect]
     Active Substance: NEFOPAM HYDROCHLORIDE
     Indication: PROCEDURAL PAIN
     Dosage: 80 MG, UNK
     Route: 042
     Dates: start: 20191030, end: 20191104
  13. LYRICA [Suspect]
     Active Substance: PREGABALIN
     Indication: NEURALGIA
     Dosage: 25 MG, 1X/DAY
     Route: 048
     Dates: start: 20191030
  14. CORTANCYL [Suspect]
     Active Substance: PREDNISONE
     Indication: PROPHYLAXIS
     Dosage: 5 MG, 1X/DAY
     Route: 048

REACTIONS (2)
  - Cholestasis [Recovering/Resolving]
  - Hepatocellular injury [Recovering/Resolving]

NARRATIVE: CASE EVENT DATE: 20191103
